FAERS Safety Report 17559877 (Version 1)
Quarter: 2020Q1

REPORT INFORMATION
  Report Type: Spontaneous
  Country: GB (occurrence: GB)
  Receive Date: 20200319
  Receipt Date: 20200319
  Transmission Date: 20200409
  Serious: Yes (Other)
  Sender: FDA-Public Use
  Company Number: GB-SUN PHARMACEUTICAL INDUSTRIES LTD-2020RR-240845

PATIENT
  Age: 59 Year
  Sex: Female

DRUGS (1)
  1. PREGABALIN. [Suspect]
     Active Substance: PREGABALIN
     Indication: PRODUCT USED FOR UNKNOWN INDICATION
     Dosage: ONE IN MORNING, TWO AT NIGHT
     Route: 065

REACTIONS (7)
  - Tremor [Unknown]
  - Dizziness [Unknown]
  - Memory impairment [Unknown]
  - Loss of consciousness [Unknown]
  - Vertigo [Unknown]
  - Wrong dose [Unknown]
  - Product dispensing error [Unknown]

NARRATIVE: CASE EVENT DATE: 20190925
